FAERS Safety Report 8841992 (Version 1)
Quarter: 2012Q4

REPORT INFORMATION
  Report Type: Spontaneous
  Country: US (occurrence: None)
  Receive Date: 20121015
  Receipt Date: 20121015
  Transmission Date: 20130627
  Serious: No
  Sender: FDA-Public Use
  Company Number: None

PATIENT
  Age: 74 Year
  Sex: Female
  Weight: 79.38 kg

DRUGS (2)
  1. CLOPIDOGREL [Suspect]
     Indication: ATRIAL FIBRILLATION
     Dates: start: 20120714
  2. CLOPIDOGREL [Suspect]
     Indication: ATRIAL FIBRILLATION
     Dates: start: 20120814

REACTIONS (2)
  - Exfoliative rash [None]
  - Product substitution issue [None]
